FAERS Safety Report 6635710-9 (Version None)
Quarter: 2010Q1

REPORT INFORMATION
  Report Type: 
  Country: None (occurrence: None)
  Receive Date: 20100312
  Receipt Date: 20100312
  Transmission Date: 20100710
  Serious: No
  Sender: FDA-Public Use
  Company Number: None

PATIENT
  Age: 71 Year
  Sex: Male
  Weight: 119.75 kg

DRUGS (1)
  1. NPH INSULIN [Suspect]
     Indication: DIABETES MELLITUS
     Dosage: 60 UNITS BID SQ
     Route: 058
     Dates: start: 20090324, end: 20100310

REACTIONS (4)
  - INJECTION SITE ERYTHEMA [None]
  - INJECTION SITE PAIN [None]
  - MASS [None]
  - RASH [None]
